FAERS Safety Report 11214369 (Version 1)
Quarter: 2015Q2

REPORT INFORMATION
  Report Type: Spontaneous
  Country: ES (occurrence: ES)
  Receive Date: 20150624
  Receipt Date: 20150624
  Transmission Date: 20150821
  Serious: Yes (Hospitalization)
  Sender: FDA-Public Use
  Company Number: ES-009507513-1506ESP009714

PATIENT
  Age: 51 Year
  Sex: Male

DRUGS (5)
  1. ENALAPRIL MALEATE (+) HYDROCHLOROTHIAZIDE [Concomitant]
     Active Substance: ENALAPRIL MALEATE\HYDROCHLOROTHIAZIDE
     Indication: HYPERTENSION
     Route: 048
     Dates: start: 20140814, end: 20150514
  2. RIBAVIRIN. [Suspect]
     Active Substance: RIBAVIRIN
     Indication: HEPATITIS C
     Route: 048
     Dates: start: 20150130, end: 20150514
  3. PEGINTRON [Suspect]
     Active Substance: PEGINTERFERON ALFA-2B
     Indication: HEPATITIS C
     Route: 065
     Dates: start: 20150130, end: 20150514
  4. AMLODIPINE [Concomitant]
     Active Substance: AMLODIPINE BESYLATE
     Indication: HYPERTENSION
     Dates: start: 20140814, end: 20150514
  5. TELAPREVIR [Concomitant]
     Active Substance: TELAPREVIR
     Dates: start: 20150130, end: 20150427

REACTIONS (3)
  - Hypotension [Recovered/Resolved]
  - Neutropenia [Recovered/Resolved]
  - Anaemia [Recovered/Resolved]

NARRATIVE: CASE EVENT DATE: 20150514
